FAERS Safety Report 21068734 (Version 1)
Quarter: 2022Q3

REPORT INFORMATION
  Report Type: Spontaneous
  Country: GB (occurrence: GB)
  Receive Date: 20220712
  Receipt Date: 20220712
  Transmission Date: 20221027
  Serious: Yes (Other)
  Sender: FDA-Public Use
  Company Number: GB-SANOFI-01163839

PATIENT
  Sex: Male

DRUGS (1)
  1. COLESEVELAM [Suspect]
     Active Substance: COLESEVELAM
     Indication: Product used for unknown indication

REACTIONS (2)
  - Diverticulitis [Unknown]
  - Abdominal distension [Unknown]
